FAERS Safety Report 23902630 (Version 5)
Quarter: 2024Q3

REPORT INFORMATION
  Report Type: Spontaneous
  Country: BR (occurrence: BR)
  Receive Date: 20240527
  Receipt Date: 20240718
  Transmission Date: 20241017
  Serious: Yes (Hospitalization)
  Sender: BOEHRINGER INGELHEIM
  Company Number: BR-BoehringerIngelheim-2024-BI-028927

PATIENT
  Age: 93 Year
  Sex: Female
  Weight: 60 kg

DRUGS (5)
  1. SPIRIVA RESPIMAT [Suspect]
     Active Substance: TIOTROPIUM BROMIDE
     Indication: Product used for unknown indication
     Dosage: 2 CONSECUTIVE PUFFS A DAY.
     Route: 055
     Dates: start: 2005, end: 2023
  2. SPIRIVA RESPIMAT [Suspect]
     Active Substance: TIOTROPIUM BROMIDE
     Dosage: 2 CONSECUTIVE PUFFS A DAY.
     Route: 055
     Dates: start: 2023, end: 2024
  3. SPIRIVA RESPIMAT [Suspect]
     Active Substance: TIOTROPIUM BROMIDE
     Dosage: 2 CONSECUTIVE PUFFS A DAY.
     Route: 055
     Dates: start: 2024, end: 20240516
  4. SPIRIVA RESPIMAT [Suspect]
     Active Substance: TIOTROPIUM BROMIDE
     Dosage: 1 PUFF A DAY.?AEROSOL SOLUTION FOR INHALATION.
     Route: 055
     Dates: start: 20240517, end: 20240517
  5. FLUTICASONE FUROATE\VILANTEROL TRIFENATATE [Concomitant]
     Active Substance: FLUTICASONE FUROATE\VILANTEROL TRIFENATATE
     Indication: Lung disorder
     Dosage: FORM STRENGTH:?200/25 MICROGRAMS.?1 INHALATION DAILY, TOGETHER WITH SPIRIVA.
     Route: 055

REACTIONS (17)
  - Complication associated with device [Recovered/Resolved]
  - Bacterial infection [Recovered/Resolved]
  - Device dislocation [Recovered/Resolved]
  - Incorrect dose administered [Recovered/Resolved]
  - Drug delivery system issue [Unknown]
  - Cardiac disorder [Not Recovered/Not Resolved]
  - Device dislocation [Recovered/Resolved]
  - Infection [Recovered/Resolved]
  - Pathogen resistance [Recovered/Resolved]
  - Complication associated with device [Unknown]
  - Dyspepsia [Not Recovered/Not Resolved]
  - Gastrooesophageal reflux disease [Not Recovered/Not Resolved]
  - Complication associated with device [Unknown]
  - Loss of consciousness [Unknown]
  - Fall [Unknown]
  - Joint injury [Unknown]
  - Heart rate decreased [Unknown]

NARRATIVE: CASE EVENT DATE: 20230101
